FAERS Safety Report 4578277-1 (Version None)
Quarter: 2005Q1

REPORT INFORMATION
  Report Type: 
  Country: None (occurrence: None)
  Receive Date: 20050127
  Receipt Date: 20040902
  Transmission Date: 20050727
  Serious: No
  Sender: FDA-Public Use
  Company Number: USA040977284

PATIENT
  Age: 13 Year
  Sex: Male
  Weight: 43 kg

DRUGS (2)
  1. STRATTERA [Suspect]
     Indication: ATTENTION DEFICIT/HYPERACTIVITY DISORDER
     Dosage: 36 MG DAY
     Dates: start: 20040829, end: 20040831
  2. ADDERALL XR 10 [Concomitant]

REACTIONS (3)
  - ANXIETY [None]
  - MEDICATION ERROR [None]
  - TACHYCARDIA [None]
